FAERS Safety Report 8827806 (Version 2)
Quarter: 2012Q4

REPORT INFORMATION
  Report Type: 
  Country: US (occurrence: US)
  Receive Date: 20121008
  Receipt Date: 20121105
  Transmission Date: 20130627
  Serious: No
  Sender: FDA-Public Use
  Company Number: US-PFIZER INC-2012247832

PATIENT
  Age: 57 Year
  Sex: Male
  Weight: 83.9 kg

DRUGS (3)
  1. CHANTIX [Suspect]
     Indication: SMOKING CESSATION THERAPY
     Dosage: 0.5 mg, daily
     Route: 048
  2. CHANTIX [Suspect]
     Dosage: 0.5 mg, daily
     Route: 048
     Dates: start: 201209
  3. CLOPIDOGREL BISULFATE [Concomitant]
     Indication: HEART DISORDER
     Dosage: 20 mg daily

REACTIONS (1)
  - Abnormal dreams [Recovered/Resolved]
